FAERS Safety Report 20074506 (Version 1)
Quarter: 2021Q4

REPORT INFORMATION
  Report Type: Spontaneous
  Country: US (occurrence: None)
  Receive Date: 20211115
  Receipt Date: 20211115
  Transmission Date: 20220303
  Serious: Yes (Hospitalization)
  Sender: FDA-Public Use
  Company Number: None

PATIENT
  Age: 64 Year
  Sex: Male
  Weight: 103 kg

DRUGS (2)
  1. DILTIAZEM [Suspect]
     Active Substance: DILTIAZEM
     Indication: Atrial fibrillation
     Dosage: FREQUENCY : DAILY;?
     Route: 048
     Dates: start: 20211026
  2. AMLODIPINE [Suspect]
     Active Substance: AMLODIPINE BESYLATE
     Indication: Hyperlipidaemia
     Dosage: FREQUENCY : DAILY;?
     Route: 048
     Dates: start: 20190611, end: 20210611

REACTIONS (9)
  - Hypotension [None]
  - Drug interaction [None]
  - Treatment noncompliance [None]
  - Nausea [None]
  - Vomiting [None]
  - Angina pectoris [None]
  - Hyperhidrosis [None]
  - Dyspnoea [None]
  - Refusal of treatment by patient [None]

NARRATIVE: CASE EVENT DATE: 20211027
